FAERS Safety Report 7104746-6 (Version None)
Quarter: 2010Q4

REPORT INFORMATION
  Report Type: 
  Country: None (occurrence: None)
  Receive Date: 20101109
  Receipt Date: 20101103
  Transmission Date: 20110411
  Serious: Yes (Life-Threatening)
  Sender: FDA-Public Use
  Company Number: 2010MA004249

PATIENT
  Age: 68 Year
  Sex: Male

DRUGS (12)
  1. SPIRONOLACTONE [Suspect]
     Indication: CARDIAC FAILURE
     Dosage: 12.5 MG; BUCC
     Route: 002
     Dates: start: 20100923, end: 20101007
  2. ALLOPURINOL [Concomitant]
  3. CALCIUM CARBONATE [Concomitant]
  4. ALFACALCIDOL [Concomitant]
  5. OMEPRAZOLE [Concomitant]
  6. ACETYL SALICYLIC ACID USP BAT [Concomitant]
  7. CLONAZEPAM [Concomitant]
  8. RAMIPRIL [Concomitant]
  9. CARVEDILOL [Concomitant]
  10. SALBUTAMOL [Concomitant]
  11. BECLOMETHASONE DIPROPIONATE [Concomitant]
  12. FOLIC ACID [Concomitant]

REACTIONS (1)
  - THROMBOCYTOPENIA [None]
